FAERS Safety Report 21717804 (Version 2)
Quarter: 2022Q4

REPORT INFORMATION
  Report Type: Spontaneous
  Country: US (occurrence: US)
  Receive Date: 20221212
  Receipt Date: 20221219
  Transmission Date: 20230113
  Serious: No
  Sender: FDA-Public Use
  Company Number: US-GBT-015572

PATIENT
  Age: 16 Year
  Sex: Female

DRUGS (5)
  1. OXBRYTA [Suspect]
     Active Substance: VOXELOTOR
     Indication: Sickle cell disease
     Route: 048
     Dates: start: 2020
  2. FOLIC ACID [Concomitant]
     Active Substance: FOLIC ACID
  3. VITAMIN D [Concomitant]
     Active Substance: VITAMIN D NOS
  4. AMITRIPTYLINE [Concomitant]
     Active Substance: AMITRIPTYLINE
  5. AMOXICILLIN [Concomitant]
     Active Substance: AMOXICILLIN

REACTIONS (8)
  - Memory impairment [Recovered/Resolved]
  - Therapy cessation [Unknown]
  - Nausea [Recovered/Resolved]
  - Drug ineffective [Unknown]
  - Fatigue [Recovered/Resolved]
  - Product use complaint [Unknown]
  - Product use issue [Unknown]
  - Headache [Recovered/Resolved]
